FAERS Safety Report 4487830-5 (Version None)
Quarter: 2004Q4

REPORT INFORMATION
  Report Type: 
  Country: None (occurrence: None)
  Receive Date: 20041025
  Receipt Date: 20041011
  Transmission Date: 20050328
  Serious: Yes (Death)
  Sender: FDA-Public Use
  Company Number: HQWYE614407OCT04

PATIENT
  Age: 11 Year
  Sex: Male

DRUGS (7)
  1. EFFEXOR [Suspect]
     Indication: ANXIETY
     Dates: start: 20021008
  2. EFFEXOR [Suspect]
     Indication: DEPRESSION
     Dates: start: 20021008
  3. ZOLOFT [Suspect]
     Indication: DEPRESSION
     Dates: start: 20020909, end: 20020916
  4. ZOLOFT [Suspect]
     Indication: DEPRESSION
     Dates: start: 20020917, end: 20021002
  5. ZOLOFT [Suspect]
     Indication: DEPRESSION
     Dates: start: 20021008
  6. . [Concomitant]
  7. . [Concomitant]

REACTIONS (12)
  - ANXIETY [None]
  - COMPLETED SUICIDE [None]
  - CONDITION AGGRAVATED [None]
  - CONVERSION DISORDER [None]
  - DELIRIUM [None]
  - HOSTILITY [None]
  - IMPULSE-CONTROL DISORDER [None]
  - IRRITABILITY [None]
  - MANIA [None]
  - RESTLESSNESS [None]
  - SCHOOL REFUSAL [None]
  - SUICIDAL IDEATION [None]
